FAERS Safety Report 6063124-1 (Version None)
Quarter: 2009Q1

REPORT INFORMATION
  Report Type: 
  Country: None (occurrence: None)
  Receive Date: 20090203
  Receipt Date: 20090128
  Transmission Date: 20090719
  Serious: Yes (Other)
  Sender: FDA-Public Use
  Company Number: US-ALLERGAN-0901046US

PATIENT
  Sex: Male

DRUGS (3)
  1. RESTASIS [Suspect]
     Indication: DRY EYE
     Dosage: 1 GTT, Q12H
     Route: 047
     Dates: start: 20080401
  2. RESTASIS [Suspect]
     Indication: POSTOPERATIVE CARE
  3. VITAMINS NOS [Concomitant]

REACTIONS (2)
  - ERYTHEMA DYSCHROMICUM PERSTANS [None]
  - LICHEN PLANUS [None]
